FAERS Safety Report 4957462-0 (Version None)
Quarter: 2006Q1

REPORT INFORMATION
  Report Type: 
  Country: None (occurrence: None)
  Receive Date: 20060328
  Receipt Date: 20060328
  Transmission Date: 20060701
  Serious: No
  Sender: FDA-Public Use
  Company Number: None

PATIENT
  Age: 31 Year
  Sex: Female

DRUGS (1)
  1. CEFTRIAXONE [Suspect]
     Dosage: 1 GM ONCE IV PIGGYBACK
     Route: 042
     Dates: start: 20060125, end: 20060125

REACTIONS (2)
  - INFUSION RELATED REACTION [None]
  - RASH [None]
